FAERS Safety Report 5361321-1 (Version None)
Quarter: 2007Q2

REPORT INFORMATION
  Report Type: 
  Country: None (occurrence: None)
  Receive Date: 20070618
  Receipt Date: 20070608
  Transmission Date: 20071010
  Serious: Yes (Hospitalization)
  Sender: FDA-Public Use
  Company Number: FR-ABBOTT-07P-056-0355674-00

PATIENT
  Age: 66 Year
  Sex: Female
  Weight: 55 kg

DRUGS (8)
  1. ZECLAR [Suspect]
     Indication: PYREXIA
     Route: 048
     Dates: start: 20060727, end: 20060730
  2. CLOBUTINOL [Suspect]
     Indication: COUGH
     Route: 048
     Dates: start: 20060728, end: 20060729
  3. PARACETAMOL [Concomitant]
     Indication: PYREXIA
     Route: 048
     Dates: start: 20060727
  4. AMOXICILLAN-ACIDE CLAVULANIQUE [Concomitant]
     Indication: DRUG USE FOR UNKNOWN INDICATION
     Route: 042
     Dates: start: 20060730, end: 20060730
  5. BRINZOLAMIDE [Concomitant]
     Indication: GLAUCOMA
     Route: 047
     Dates: start: 20060730, end: 20060730
  6. PREDNISONE TAB [Concomitant]
     Indication: DRUG USE FOR UNKNOWN INDICATION
     Route: 048
  7. DIURETICS [Concomitant]
     Indication: DRUG USE FOR UNKNOWN INDICATION
  8. ACE INHIBITOR NOS [Concomitant]
     Indication: DRUG USE FOR UNKNOWN INDICATION

REACTIONS (7)
  - AGRANULOCYTOSIS [None]
  - APLASIA [None]
  - ASTHENIA [None]
  - GENERAL PHYSICAL HEALTH DETERIORATION [None]
  - HAEMOPTYSIS [None]
  - PNEUMONIA [None]
  - PYREXIA [None]
